FAERS Safety Report 5519622-X (Version None)
Quarter: 2007Q4

REPORT INFORMATION
  Report Type: 
  Country: None (occurrence: None)
  Receive Date: 20071116
  Receipt Date: 20071107
  Transmission Date: 20080405
  Serious: Yes (Life-Threatening, Hospitalization)
  Sender: FDA-Public Use
  Company Number: GB-ROCHE-530606

PATIENT
  Age: 85 Year
  Sex: Female

DRUGS (23)
  1. GRANISETRON  HCL [Suspect]
     Indication: PROPHYLAXIS
     Route: 042
     Dates: start: 20061120, end: 20061120
  2. ATRACURIUM [Interacting]
     Indication: PERIOPERATIVE ANALGESIA
     Route: 042
     Dates: start: 20061120
  3. TEMAZEPAM [Concomitant]
     Indication: INSOMNIA
     Route: 048
     Dates: start: 20061117
  4. SUXAMETHONIUM [Concomitant]
     Indication: PERIOPERATIVE ANALGESIA
     Route: 042
     Dates: start: 20061120
  5. SPIRONOLACTONE [Concomitant]
     Route: 048
     Dates: start: 20061113
  6. SIMVASTATIN [Concomitant]
     Route: 048
     Dates: start: 20040326
  7. PARACETAMOL [Concomitant]
     Route: 048
     Dates: start: 20050624
  8. MIDAZOLAM HCL [Concomitant]
     Indication: PERIOPERATIVE ANALGESIA
     Route: 042
     Dates: start: 20061120
  9. METRONIDAZOLE [Concomitant]
     Indication: PERIOPERATIVE ANALGESIA
     Route: 042
     Dates: start: 20061120
  10. METARAMINOL [Concomitant]
     Indication: PERIOPERATIVE ANALGESIA
     Route: 042
     Dates: start: 20061120
  11. ISOFLURANE [Concomitant]
     Indication: PERIOPERATIVE ANALGESIA
     Route: 055
     Dates: start: 20061120
  12. GLYCERYL TRINITRATE [Concomitant]
     Route: 048
     Dates: start: 20040513
  13. GABAPENTIN [Concomitant]
     Route: 048
     Dates: start: 20060907
  14. FERROUS GLUCONATE [Concomitant]
     Route: 048
     Dates: start: 20051104
  15. FENTANYL [Concomitant]
     Indication: PERIOPERATIVE ANALGESIA
     Route: 042
     Dates: start: 20061120
  16. ETOMIDATE [Concomitant]
     Indication: PERIOPERATIVE ANALGESIA
     Route: 042
     Dates: start: 20061120
  17. CO-CODAMOL [Concomitant]
     Indication: BACK PAIN
     Route: 048
     Dates: start: 20061117
  18. CEFUROXIME [Concomitant]
     Indication: PERIOPERATIVE ANALGESIA
     Route: 042
     Dates: start: 20061120
  19. CALCIUM CARBONATE [Concomitant]
     Route: 048
     Dates: start: 20030401
  20. BUMETANIDE [Concomitant]
     Route: 048
     Dates: start: 20061103
  21. BETAXOLOL [Concomitant]
     Route: 047
     Dates: start: 19991217
  22. ASPIRIN [Concomitant]
     Route: 048
     Dates: start: 20061113
  23. ALENDRONIC ACID [Concomitant]
     Route: 048
     Dates: start: 20030401

REACTIONS (2)
  - DRUG INTERACTION [None]
  - VENTRICULAR FIBRILLATION [None]
